FAERS Safety Report 9651803 (Version 1)
Quarter: 2013Q4

REPORT INFORMATION
  Report Type: Spontaneous
  Country: US (occurrence: US)
  Receive Date: 20131029
  Receipt Date: 20131029
  Transmission Date: 20140711
  Serious: Yes (Other)
  Sender: FDA-Public Use
  Company Number: US-BAYER-2013-128441

PATIENT
  Age: 9 Year
  Sex: Female
  Weight: 34 kg

DRUGS (1)
  1. RID 1-2-3 SYSTEM [Suspect]
     Indication: LICE INFESTATION
     Dosage: 1 DOSE, ONCE
     Dates: start: 20131020, end: 20131020

REACTIONS (8)
  - Anaphylactic reaction [None]
  - Hyperventilation [None]
  - Erythema [None]
  - Dizziness [None]
  - Nausea [None]
  - Ocular hyperaemia [None]
  - Feeling hot [None]
  - Panic reaction [None]
